FAERS Safety Report 21179877 (Version 1)
Quarter: 2022Q3

REPORT INFORMATION
  Report Type: Spontaneous
  Country: US (occurrence: None)
  Receive Date: 20220805
  Receipt Date: 20220805
  Transmission Date: 20221026
  Serious: Yes (Other)
  Sender: FDA-Public Use
  Company Number: None

PATIENT
  Age: 62 Year
  Sex: Female
  Weight: 87.75 kg

DRUGS (7)
  1. PAXLOVID [Suspect]
     Active Substance: NIRMATRELVIR\RITONAVIR
     Indication: COVID-19
     Dosage: FREQUENCY : TWICE A DAY;?
     Route: 048
     Dates: start: 20220723, end: 20220727
  2. VITAMINS [Concomitant]
     Active Substance: VITAMINS
  3. citracal +D3 [Concomitant]
  4. vit c 500mg [Concomitant]
  5. FISH OIL [Concomitant]
     Active Substance: FISH OIL
  6. TYLENOL [Concomitant]
     Active Substance: ACETAMINOPHEN
  7. CLARITIN [Concomitant]
     Active Substance: LORATADINE

REACTIONS (2)
  - COVID-19 [None]
  - SARS-CoV-2 test positive [None]

NARRATIVE: CASE EVENT DATE: 20220731
